FAERS Safety Report 17982407 (Version 1)
Quarter: 2020Q3

REPORT INFORMATION
  Report Type: Spontaneous
  Country: US (occurrence: US)
  Receive Date: 20200701
  Receipt Date: 20200701
  Transmission Date: 20201103
  Serious: Yes (Disabling, Other)
  Sender: FDA-Public Use
  Company Number: None

PATIENT
  Age: 74 Year
  Sex: Male
  Weight: 86.18 kg

DRUGS (3)
  1. CIPROFLOXACIN. [Suspect]
     Active Substance: CIPROFLOXACIN
     Indication: INFECTION PROPHYLAXIS
     Dosage: ?          QUANTITY:2 DF DOSAGE FORM;?
     Route: 048
     Dates: start: 20190513, end: 20190519
  2. LISINOPRIL. [Concomitant]
     Active Substance: LISINOPRIL
  3. REPATHA [Concomitant]
     Active Substance: EVOLOCUMAB

REACTIONS (11)
  - Dizziness [None]
  - Headache [None]
  - Gait disturbance [None]
  - Muscular weakness [None]
  - Hypertension [None]
  - Pain in extremity [None]
  - Asthenia [None]
  - Tinnitus [None]
  - Burning sensation [None]
  - Arthralgia [None]
  - Hypoaesthesia [None]

NARRATIVE: CASE EVENT DATE: 20190607
